FAERS Safety Report 7686200-6 (Version None)
Quarter: 2011Q3

REPORT INFORMATION
  Report Type: 
  Country: None (occurrence: None)
  Receive Date: 20110811
  Receipt Date: 20110729
  Transmission Date: 20111222
  Serious: Yes (Death, Other)
  Sender: FDA-Public Use
  Company Number: AUR-APL-2011-03605

PATIENT
  Age: 66 Year
  Sex: Female

DRUGS (6)
  1. ASPIRIN [Concomitant]
  2. ATORVASTATIN CALCIUM [Concomitant]
  3. CITALOPRAM HYDROBROMIDE [Suspect]
     Indication: PRODUCT USED FOR UNKNOWN INDICATION
     Dosage: 20 MG
     Dates: start: 20070401
  4. LEVOTHYROXINE SODIUM [Concomitant]
  5. MIRTAZAPINE [Suspect]
     Indication: DEPRESSION
     Dosage: 45 MG; 30 MG; 15 MG, ORAL
     Route: 048
     Dates: start: 20070527
  6. LITHIUM CARBONATE [Concomitant]

REACTIONS (11)
  - COMPLETED SUICIDE [None]
  - AGITATION [None]
  - SEROTONIN SYNDROME [None]
  - ABNORMAL BEHAVIOUR [None]
  - CONFUSIONAL STATE [None]
  - INCORRECT DRUG DOSAGE FORM ADMINISTERED [None]
  - ASPHYXIA [None]
  - OVERDOSE [None]
  - ANXIETY [None]
  - HISTRIONIC PERSONALITY DISORDER [None]
  - CONDITION AGGRAVATED [None]
